FAERS Safety Report 12399190 (Version 1)
Quarter: 2016Q2

REPORT INFORMATION
  Report Type: Spontaneous
  Country: US (occurrence: US)
  Receive Date: 20160524
  Receipt Date: 20160524
  Transmission Date: 20160815
  Serious: No
  Sender: FDA-Public Use
  Company Number: US-MISSION PHARMACAL COMPANY-1052732

PATIENT
  Age: 29 Year
  Sex: Male

DRUGS (2)
  1. D-PEN [Concomitant]
     Route: 065
  2. THIOLA [Suspect]
     Active Substance: TIOPRONIN
     Indication: CYSTINURIA
     Route: 065
     Dates: start: 20151119

REACTIONS (2)
  - Product taste abnormal [Unknown]
  - Alcohol intolerance [Unknown]
